FAERS Safety Report 7661581-8 (Version None)
Quarter: 2011Q3

REPORT INFORMATION
  Report Type: 
  Country: None (occurrence: None)
  Receive Date: 20110805
  Receipt Date: 20110725
  Transmission Date: 20111222
  Serious: Yes (Hospitalization)
  Sender: FDA-Public Use
  Company Number: JP-CELGENEUS-TAJPN-10-0691

PATIENT
  Sex: Female
  Weight: 70 kg

DRUGS (16)
  1. ABRAXANE [Suspect]
     Dosage: 316-387MG
     Route: 065
     Dates: start: 20101119, end: 20110114
  2. FUROSEMIDE [Concomitant]
     Route: 048
     Dates: start: 20101029
  3. AMOBAN [Concomitant]
     Route: 048
     Dates: start: 20101229, end: 20101230
  4. MAXIPIME [Concomitant]
     Route: 065
     Dates: end: 20101113
  5. ABRAXANE [Suspect]
     Indication: BREAST CANCER METASTATIC
     Dosage: 390 MILLIGRAM
     Route: 065
     Dates: start: 20101029, end: 20101029
  6. FUDOSTEINE [Concomitant]
     Route: 048
     Dates: start: 20101029
  7. NEUTROGIN [Concomitant]
     Route: 065
     Dates: end: 20101107
  8. RABEPRAZOLE SODIUM [Concomitant]
     Route: 048
     Dates: start: 20101029
  9. WHOLE BLOOD [Concomitant]
     Route: 041
     Dates: start: 20101226, end: 20101226
  10. ABRAXANE [Suspect]
     Dosage: 380 MILLIGRAM
     Route: 065
     Dates: start: 20101210
  11. EMEND [Concomitant]
     Route: 048
     Dates: start: 20101029, end: 20101031
  12. MS CONTIN [Concomitant]
     Route: 048
     Dates: start: 20101029
  13. TEPRENONE [Concomitant]
     Route: 048
     Dates: start: 20101029
  14. ABRAXANE [Suspect]
     Dosage: 316 MILLIGRAM
     Route: 065
     Dates: start: 20110114
  15. LOXOPROFEN [Concomitant]
     Route: 048
     Dates: start: 20101029
  16. METOCLOPRAMIDE [Concomitant]
     Route: 048
     Dates: start: 20101029

REACTIONS (8)
  - NAUSEA [None]
  - WHITE BLOOD CELL COUNT DECREASED [None]
  - GAMMA-GLUTAMYLTRANSFERASE INCREASED [None]
  - PLEURAL EFFUSION [None]
  - NEUTROPHIL COUNT DECREASED [None]
  - BLOOD ALKALINE PHOSPHATASE INCREASED [None]
  - MALAISE [None]
  - C-REACTIVE PROTEIN INCREASED [None]
